FAERS Safety Report 25058948 (Version 6)
Quarter: 2025Q2

REPORT INFORMATION
  Report Type: Spontaneous
  Country: CR (occurrence: CR)
  Receive Date: 20250310
  Receipt Date: 20250501
  Transmission Date: 20250717
  Serious: No
  Sender: PFIZER
  Company Number: CR-PFIZER INC-202500045397

PATIENT
  Age: 12 Year
  Sex: Female

DRUGS (1)
  1. GENOTROPIN [Suspect]
     Active Substance: SOMATROPIN
     Dosage: 0.8 MG, DAILY

REACTIONS (1)
  - Device leakage [Unknown]
